FAERS Safety Report 5605700-3 (Version None)
Quarter: 2008Q1

REPORT INFORMATION
  Report Type: 
  Country: None (occurrence: None)
  Receive Date: 20080129
  Receipt Date: 20080121
  Transmission Date: 20080703
  Serious: Yes (Other)
  Sender: FDA-Public Use
  Company Number: US-BAYER-200811861NA

PATIENT
  Age: 38 Year
  Sex: Female
  Weight: 77 kg

DRUGS (1)
  1. MAGNEVIST [Suspect]
     Indication: NUCLEAR MAGNETIC RESONANCE IMAGING
     Dosage: TOTAL DAILY DOSE: 17 ML  UNIT DOSE: 17 ML
     Route: 042
     Dates: start: 20080116, end: 20080116

REACTIONS (8)
  - BRONCHOSPASM [None]
  - COUGH [None]
  - ERYTHEMA [None]
  - HOT FLUSH [None]
  - LACRIMATION INCREASED [None]
  - NASAL CONGESTION [None]
  - STOMACH DISCOMFORT [None]
  - THROAT TIGHTNESS [None]
